FAERS Safety Report 22044116 (Version 1)
Quarter: 2023Q1

REPORT INFORMATION
  Report Type: Spontaneous
  Country: US (occurrence: US)
  Receive Date: 20230228
  Receipt Date: 20230228
  Transmission Date: 20230418
  Serious: No
  Sender: FDA-Public Use
  Company Number: US-AMNEAL PHARMACEUTICALS-2022-AMRX-03299

PATIENT
  Sex: Male

DRUGS (4)
  1. ABIRATERONE ACETATE [Suspect]
     Active Substance: ABIRATERONE ACETATE
     Indication: Product used for unknown indication
     Dosage: UNK
     Route: 065
     Dates: start: 20220531
  2. RELUGOLIX [Suspect]
     Active Substance: RELUGOLIX
     Indication: Prostate cancer
     Dosage: 360 MILLIGRAM
     Route: 048
     Dates: start: 20220531, end: 20220531
  3. RELUGOLIX [Suspect]
     Active Substance: RELUGOLIX
     Dosage: 120 MILLIGRAM, QD
     Route: 048
     Dates: start: 20220601
  4. RELUGOLIX [Suspect]
     Active Substance: RELUGOLIX
     Dosage: UNK
     Route: 065

REACTIONS (2)
  - Urinary incontinence [Not Recovered/Not Resolved]
  - Hot flush [Unknown]
